FAERS Safety Report 25884634 (Version 1)
Quarter: 2025Q4

REPORT INFORMATION
  Report Type: Spontaneous
  Country: US (occurrence: US)
  Receive Date: 20251006
  Receipt Date: 20251006
  Transmission Date: 20260117
  Serious: No
  Sender: VERTEX
  Company Number: US-VERTEX PHARMACEUTICALS-2025-016057

PATIENT
  Age: 83 Year
  Sex: Female

DRUGS (3)
  1. JOURNAVX [Suspect]
     Active Substance: SUZETRIGINE
     Indication: Pain
     Dosage: 50 MG SUZETRIGINE, BID
     Route: 048
     Dates: start: 20250830, end: 20250901
  2. BUPIVACAINE [Concomitant]
     Active Substance: BUPIVACAINE
     Dosage: INTRATHECAL PUMP
     Route: 037
  3. CLONIDINE [Concomitant]
     Active Substance: CLONIDINE
     Dosage: INTRATHECAL PUMP
     Route: 037

REACTIONS (1)
  - Diarrhoea [Recovered/Resolved]

NARRATIVE: CASE EVENT DATE: 20250830
